FAERS Safety Report 13063790 (Version 1)
Quarter: 2016Q4

REPORT INFORMATION
  Report Type: Spontaneous
  Country: US (occurrence: US)
  Receive Date: 20161227
  Receipt Date: 20161227
  Transmission Date: 20170207
  Serious: No
  Sender: FDA-Public Use
  Company Number: US-PFIZER INC-2016585075

PATIENT
  Age: 69 Year
  Sex: Female

DRUGS (2)
  1. ERYTHROMYCIN. [Suspect]
     Active Substance: ERYTHROMYCIN
  2. EROMYCIN [Suspect]
     Active Substance: ERYTHROMYCIN ESTOLATE

REACTIONS (2)
  - Drug hypersensitivity [Unknown]
  - Rash [Unknown]
